FAERS Safety Report 11348008 (Version 1)
Quarter: 2015Q3

REPORT INFORMATION
  Report Type: Spontaneous
  Country: US (occurrence: US)
  Receive Date: 20150803
  Receipt Date: 20150803
  Transmission Date: 20151125
  Serious: No
  Sender: FDA-Public Use
  Company Number: US-ELI_LILLY_AND_COMPANY-US201106007442

PATIENT
  Age: 37 Year
  Sex: Male

DRUGS (4)
  1. OLANZAPINE. [Suspect]
     Active Substance: OLANZAPINE
     Route: 065
  2. ZYPREXA [Suspect]
     Active Substance: OLANZAPINE
     Indication: SCHIZOPHRENIA
     Dosage: 5 MG, QD
     Dates: start: 199703
  3. ZYPREXA [Suspect]
     Active Substance: OLANZAPINE
     Dosage: 5 MG, QD
     Dates: start: 20110926
  4. ZYPREXA [Suspect]
     Active Substance: OLANZAPINE
     Dosage: 2.5 MG, UNK

REACTIONS (15)
  - Gastrointestinal infection [Unknown]
  - Middle insomnia [Unknown]
  - Mental disorder [Unknown]
  - Dyskinesia [Unknown]
  - Sensory disturbance [Unknown]
  - Muscle spasms [Unknown]
  - Chest pain [Unknown]
  - Intentional product misuse [Unknown]
  - Adverse event [Unknown]
  - Muscle twitching [Unknown]
  - Dehydration [Unknown]
  - Malaise [Unknown]
  - Limb injury [Unknown]
  - Adverse event [Unknown]
  - Drug dose omission [Unknown]

NARRATIVE: CASE EVENT DATE: 2011
